FAERS Safety Report 8814985 (Version 7)
Quarter: 2014Q1

REPORT INFORMATION
  Report Type: Report from Study
  Country: CA (occurrence: CA)
  Receive Date: 20120928
  Receipt Date: 20140114
  Transmission Date: 20141002
  Serious: Yes (Hospitalization, Other)
  Sender: FDA-Public Use
  Company Number: PHHY2012CA082468

PATIENT
  Sex: Female

DRUGS (15)
  1. CLOZARIL [Suspect]
     Indication: SCHIZOPHRENIA
     Dosage: UNK UKN, UNK
     Route: 048
     Dates: start: 20060118
  2. CLOZARIL [Suspect]
     Dosage: 2 TABLETS OF 100MG AT BED TIME
     Route: 048
     Dates: start: 200602
  3. CLOZARIL [Suspect]
     Dosage: 2 TABLETS OF 100MG AT BED TIME
     Route: 048
     Dates: start: 2007, end: 201211
  4. CLOZARIL [Suspect]
     Dosage: UNK UKN, UNK
  5. SYNTHROID [Concomitant]
     Dosage: 0.05 MG, DAILY
  6. CLONAZEPAM [Concomitant]
     Dosage: 0.5 MG, DAILY
  7. PANTOLOC [Concomitant]
     Dosage: 40 MG, DAILY
  8. PAROXETINE [Concomitant]
     Dosage: 30 MG, DAILY
  9. METFORMIN [Concomitant]
     Dosage: 500 MG, DAILY
  10. ATORVASTATIN [Concomitant]
     Dosage: 20 MG, QD (20 MG, AT BEDTIME)
  11. PLAVIX [Concomitant]
     Dosage: 75 MG, DAILY
  12. VITAMIN B12 [Concomitant]
     Dosage: 1 MG, DAILY
  13. COVERSYL [Concomitant]
     Dosage: 2 MG, DAILY
  14. DIABETA [Concomitant]
     Dosage: 2.5 MG, DAILY
  15. FOLIC ACID [Concomitant]
     Dosage: 5 MG, DAILY

REACTIONS (10)
  - Breast cancer [Unknown]
  - Cancer in remission [Not Recovered/Not Resolved]
  - Pyelonephritis [Not Recovered/Not Resolved]
  - Leukopenia [Not Recovered/Not Resolved]
  - Lymphopenia [Not Recovered/Not Resolved]
  - Lymphocyte count decreased [Not Recovered/Not Resolved]
  - Thrombocytopenia [Not Recovered/Not Resolved]
  - Anaemia [Not Recovered/Not Resolved]
  - Haematocrit decreased [Not Recovered/Not Resolved]
  - Red blood cell count decreased [Not Recovered/Not Resolved]
